FAERS Safety Report 4961616-7 (Version None)
Quarter: 2006Q1

REPORT INFORMATION
  Report Type: 
  Country: None (occurrence: None)
  Receive Date: 20060329
  Receipt Date: 20060315
  Transmission Date: 20060701
  Serious: Yes (Hospitalization)
  Sender: FDA-Public Use
  Company Number: B0416795A

PATIENT
  Age: 36 Year
  Sex: Female

DRUGS (4)
  1. RETROVIR [Suspect]
     Indication: HIV INFECTION
     Dosage: 300 MG / TWICE PER DAY /
  2. EPIVIR [Suspect]
     Indication: HIV INFECTION
     Dosage: 150 MG / TWICE PER DAY /
  3. NELFINAVIR MESYLATE (NELFINAVIR MESYLATE) [Suspect]
     Indication: HIV INFECTION
     Dosage: 1250 MG / TWICE PER DAY /
  4. DAPSONE [Concomitant]

REACTIONS (12)
  - ASTHENIA [None]
  - CONDITION AGGRAVATED [None]
  - DEPRESSION [None]
  - GALLBLADDER DISORDER [None]
  - HEPATITIS ACUTE [None]
  - HEPATOMEGALY [None]
  - HIV INFECTION [None]
  - INTERNATIONAL NORMALISED RATIO INCREASED [None]
  - MYALGIA [None]
  - PHARYNGOLARYNGEAL PAIN [None]
  - PYREXIA [None]
  - RASH ERYTHEMATOUS [None]
